FAERS Safety Report 13351187 (Version 2)
Quarter: 2017Q2

REPORT INFORMATION
  Report Type: Spontaneous
  Country: JP (occurrence: JP)
  Receive Date: 20170320
  Receipt Date: 20170515
  Transmission Date: 20170830
  Serious: Yes (Hospitalization)
  Sender: FDA-Public Use
  Company Number: JP-SA-2017SA043834

PATIENT
  Age: 79 Year
  Sex: Male

DRUGS (1)
  1. JEVTANA [Suspect]
     Active Substance: CABAZITAXEL
     Indication: PROSTATE CANCER
     Dosage: FREQUENCY: EVERY 4 WEEK
     Route: 042
     Dates: start: 20160613, end: 20170227

REACTIONS (1)
  - Gingivitis [Recovered/Resolved]

NARRATIVE: CASE EVENT DATE: 20170313
